FAERS Safety Report 4514646-3 (Version None)
Quarter: 2004Q3

REPORT INFORMATION
  Report Type: 
  Country: None (occurrence: None)
  Receive Date: 20040927
  Receipt Date: 20040721
  Transmission Date: 20050211
  Serious: Yes (Hospitalization)
  Sender: FDA-Public Use
  Company Number: UK080324

PATIENT
  Age: 58 Year
  Sex: Male

DRUGS (4)
  1. NEULASTA [Suspect]
     Indication: CHEMOTHERAPY
     Dates: start: 20040101
  2. OXALIPLATIN [Concomitant]
  3. FLUOROURACIL [Concomitant]
  4. FOLINIC ACID [Concomitant]

REACTIONS (1)
  - LEUKOPENIA [None]
